FAERS Safety Report 6042683-9 (Version None)
Quarter: 2009Q1

REPORT INFORMATION
  Report Type: 
  Country: None (occurrence: None)
  Receive Date: 20090119
  Receipt Date: 20090109
  Transmission Date: 20090719
  Serious: Yes (Other)
  Sender: FDA-Public Use
  Company Number: PHHY2008JP27355

PATIENT
  Age: 60 Year
  Sex: Female

DRUGS (3)
  1. DIOVAN [Suspect]
     Indication: HYPERTENSION
     Dosage: 1 DF, QD
     Route: 048
     Dates: start: 20080101, end: 20080701
  2. ADALAT [Concomitant]
  3. CARDENALIN [Concomitant]
     Dosage: UNK
     Dates: end: 20080701

REACTIONS (1)
  - BLOOD CREATINE PHOSPHOKINASE INCREASED [None]
